FAERS Safety Report 20585287 (Version 1)
Quarter: 2022Q1

REPORT INFORMATION
  Report Type: Spontaneous
  Country: BE (occurrence: BE)
  Receive Date: 20220312
  Receipt Date: 20220312
  Transmission Date: 20220424
  Serious: Yes (Death, Life-Threatening, Hospitalization, Other)
  Sender: FDA-Public Use
  Company Number: BE-Accord-256090

PATIENT
  Age: 83 Year
  Sex: Female

DRUGS (9)
  1. APIXABAN [Suspect]
     Active Substance: APIXABAN
     Indication: Pulmonary embolism
     Dosage: 5 MILLIGRAM, BID
     Route: 065
  2. FONDAPARINUX [Suspect]
     Active Substance: FONDAPARINUX
     Indication: Pulmonary embolism
     Dosage: 5 MILLIGRAM, QD DAY 1 TO DAY 3
     Route: 058
  3. FONDAPARINUX [Suspect]
     Active Substance: FONDAPARINUX
     Dosage: 7.5 MILLIGRAM, QD DAY 4 TO DAY 11
     Route: 058
  4. MOXIFLOXACIN HYDROCHLORIDE [Concomitant]
     Active Substance: MOXIFLOXACIN HYDROCHLORIDE
     Indication: Moraxella infection
     Dosage: 400 MILLIGRAM, QD FOR 5 DAYS
     Route: 048
  5. HUMAN IMMUNOGLOBULIN G [Concomitant]
     Active Substance: HUMAN IMMUNOGLOBULIN G
     Indication: Thrombotic thrombocytopenic purpura
     Dosage: 15 GRAM
     Route: 042
  6. HUMAN IMMUNOGLOBULIN G [Concomitant]
     Active Substance: HUMAN IMMUNOGLOBULIN G
     Dosage: 60 GRAM DAY 2
     Route: 042
  7. HUMAN IMMUNOGLOBULIN G [Concomitant]
     Active Substance: HUMAN IMMUNOGLOBULIN G
     Dosage: 60 GRAM DAY 3
     Route: 042
  8. HUMAN IMMUNOGLOBULIN G [Concomitant]
     Active Substance: HUMAN IMMUNOGLOBULIN G
     Dosage: 1.7 GRAM OVER 48 HOURS
     Route: 042
  9. METHYLPREDNISOLONE [Concomitant]
     Active Substance: METHYLPREDNISOLONE
     Indication: Thrombotic thrombocytopenic purpura
     Dosage: 1 MILLIGRAM/KILOGRAM
     Route: 065

REACTIONS (3)
  - Adrenal haemorrhage [Fatal]
  - Hypovolaemic shock [Fatal]
  - Prescribed underdose [Unknown]
